FAERS Safety Report 4662752-5 (Version None)
Quarter: 2005Q2

REPORT INFORMATION
  Report Type: 
  Country: None (occurrence: None)
  Receive Date: 20050512
  Receipt Date: 20050420
  Transmission Date: 20051028
  Serious: Yes (Death)
  Sender: FDA-Public Use
  Company Number: EWC050443713

PATIENT
  Age: 75 Year
  Sex: Female

DRUGS (4)
  1. ZYPREXA [Suspect]
     Dates: start: 20041001
  2. SINTROM [Concomitant]
  3. DIGOXIN [Concomitant]
  4. DIOVAN [Concomitant]

REACTIONS (1)
  - HAEMORRHAGIC STROKE [None]
